FAERS Safety Report 8890155 (Version 2)
Quarter: 2012Q4

REPORT INFORMATION
  Report Type: 
  Country: JP (occurrence: JP)
  Receive Date: 20121107
  Receipt Date: 20121115
  Transmission Date: 20130627
  Serious: Yes (Hospitalization, Other)
  Sender: FDA-Public Use
  Company Number: JP-PFIZER INC-2012276232

PATIENT
  Age: 58 Year
  Sex: Male

DRUGS (1)
  1. AMIODARONE HYDROCHLORIDE [Suspect]
     Indication: VENTRICULAR TACHYCARDIA
     Dosage: UNK, 100 mg [TE]
     Route: 048
     Dates: start: 2008, end: 2012

REACTIONS (10)
  - Cardiac failure chronic [Recovering/Resolving]
  - Hyperthyroidism [Recovering/Resolving]
  - Tri-iodothyronine increased [Unknown]
  - Thyroxine free increased [Unknown]
  - Blood thyroid stimulating hormone decreased [Unknown]
  - Diarrhoea [Recovering/Resolving]
  - Oedema peripheral [Unknown]
  - Ejection fraction decreased [Unknown]
  - Respiratory disorder [Unknown]
  - Dyspnoea exertional [Unknown]
